FAERS Safety Report 6264493-X (Version None)
Quarter: 2009Q3

REPORT INFORMATION
  Report Type: 
  Country: None (occurrence: None)
  Receive Date: 20090710
  Receipt Date: 20090708
  Transmission Date: 20100115
  Serious: Yes (Other)
  Sender: FDA-Public Use
  Company Number: US-AMGEN-US349614

PATIENT
  Sex: Male
  Weight: 100 kg

DRUGS (21)
  1. NPLATE [Suspect]
     Indication: IDIOPATHIC THROMBOCYTOPENIC PURPURA
     Route: 058
     Dates: start: 20090513
  2. NPLATE [Suspect]
     Dates: start: 20090527
  3. NOVOLOG [Suspect]
  4. LISINOPRIL [Concomitant]
  5. LANTUS [Concomitant]
  6. DECADRON [Concomitant]
     Route: 048
     Dates: start: 20090508, end: 20090514
  7. DECADRON [Concomitant]
     Route: 042
     Dates: start: 20090517, end: 20090519
  8. DECADRON [Concomitant]
     Route: 048
     Dates: start: 20090522, end: 20090527
  9. DECADRON [Concomitant]
     Dates: start: 20090527, end: 20090529
  10. DECADRON [Concomitant]
     Route: 042
     Dates: start: 20090530, end: 20090530
  11. DECADRON [Concomitant]
     Route: 042
     Dates: start: 20090531, end: 20090531
  12. DECADRON [Concomitant]
     Route: 042
     Dates: start: 20090602, end: 20090610
  13. DECADRON [Concomitant]
     Route: 048
     Dates: start: 20090611
  14. CORTICOSTEROIDS [Concomitant]
     Dates: start: 20090219
  15. RITUXIMAB [Concomitant]
     Dates: start: 20090319, end: 20090604
  16. BACTRIM DS [Concomitant]
  17. NORVASC [Concomitant]
  18. PROTONIX [Concomitant]
  19. MIRALAX [Concomitant]
  20. SENOKOT [Concomitant]
  21. SOLU-MEDROL [Concomitant]
     Route: 065
     Dates: start: 20090430, end: 20090508

REACTIONS (10)
  - ALANINE AMINOTRANSFERASE INCREASED [None]
  - ASPARTATE AMINOTRANSFERASE INCREASED [None]
  - BLOOD ALKALINE PHOSPHATASE INCREASED [None]
  - BLOOD GLUCOSE ABNORMAL [None]
  - BLOOD GLUCOSE INCREASED [None]
  - CHOLELITHIASIS [None]
  - DIABETES MELLITUS INADEQUATE CONTROL [None]
  - HEPATIC STEATOSIS [None]
  - LIVER FUNCTION TEST ABNORMAL [None]
  - WEIGHT DECREASED [None]
